FAERS Safety Report 9419803 (Version 2)
Quarter: 2013Q3

REPORT INFORMATION
  Report Type: Spontaneous
  Country: HU (occurrence: HU)
  Receive Date: 20130725
  Receipt Date: 20130811
  Transmission Date: 20140515
  Serious: Yes (Hospitalization, Other)
  Sender: FDA-Public Use
  Company Number: HU-ELI_LILLY_AND_COMPANY-HU201307005411

PATIENT
  Age: 37 Year
  Sex: Female

DRUGS (5)
  1. ZYPADHERA [Suspect]
     Indication: SCHIZOPHRENIA
     Dosage: 405 MG, 2/W
     Route: 030
     Dates: start: 20130215
  2. ZYPADHERA [Suspect]
     Dosage: 405 MG, 3/W
     Route: 030
     Dates: start: 20130215
  3. ZYPADHERA [Suspect]
     Dosage: 300 MG, 2/M
  4. OLANZAPINE [Concomitant]
     Dosage: UNK, UNKNOWN
     Route: 065
     Dates: start: 201301
  5. XANAX [Concomitant]
     Dosage: UNK, UNKNOWN
     Route: 065

REACTIONS (8)
  - Schizoaffective disorder [Unknown]
  - Suicide attempt [Unknown]
  - Blood prolactin increased [Unknown]
  - Headache [Unknown]
  - Menstrual disorder [Unknown]
  - Prescribed overdose [Unknown]
  - Asthenia [Unknown]
  - Constipation [Unknown]
